FAERS Safety Report 20720400 (Version 7)
Quarter: 2022Q2

REPORT INFORMATION
  Report Type: Spontaneous
  Country: ES (occurrence: None)
  Receive Date: 20220418
  Receipt Date: 20220527
  Transmission Date: 20220721
  Serious: Yes (Death, Hospitalization)
  Sender: FDA-Public Use
  Company Number: 2021A521785

PATIENT
  Age: 77 Year
  Sex: Female

DRUGS (6)
  1. OMEPRAZOLE SODIUM [Suspect]
     Active Substance: OMEPRAZOLE SODIUM
     Indication: Product used for unknown indication
     Route: 048
     Dates: start: 2021, end: 2021
  2. CEFUROXIME [Suspect]
     Active Substance: CEFUROXIME
     Indication: Product used for unknown indication
     Route: 065
     Dates: start: 2021, end: 2021
  3. BROMAZEPAM [Suspect]
     Active Substance: BROMAZEPAM
     Indication: Anxiety
     Route: 065
     Dates: start: 2021, end: 2021
  4. HYDROCHLOROTHIAZIDE\LOSARTAN [Suspect]
     Active Substance: HYDROCHLOROTHIAZIDE\LOSARTAN
     Indication: Hypertension
     Dosage: 50MG/12.5MG
     Route: 065
     Dates: start: 2021, end: 2021
  5. COMIRNATY [Suspect]
     Active Substance: TOZINAMERAN
     Indication: COVID-19 immunisation
     Dosage: 2 DOSES ADMINISTERED - PLACE OF ADMINISTRATION:ALLIEN
     Route: 065
     Dates: start: 20210406, end: 20210406
  6. COMIRNATY [Suspect]
     Active Substance: TOZINAMERAN
     Indication: COVID-19 immunisation
     Dosage: 2 DOSES ADMINISTERED - PLACE OF ADMINISTRATION:ALLIEN
     Route: 065
     Dates: start: 20210427, end: 20210427

REACTIONS (4)
  - Hepatitis toxic [Fatal]
  - Vomiting [Unknown]
  - Nausea [Unknown]
  - Jaundice [Unknown]

NARRATIVE: CASE EVENT DATE: 20210429
